FAERS Safety Report 9744323 (Version 6)
Quarter: 2014Q1

REPORT INFORMATION
  Report Type: Report from Study
  Country: IE (occurrence: IE)
  Receive Date: 20131210
  Receipt Date: 20140320
  Transmission Date: 20141002
  Serious: Yes (Hospitalization)
  Sender: FDA-Public Use
  Company Number: IE-BAYER-2013-146615

PATIENT
  Age: 85 Year
  Sex: Male
  Weight: 71 kg

DRUGS (13)
  1. ALPHARADIN [Suspect]
     Indication: HORMONE-REFRACTORY PROSTATE CANCER
     Dosage: DAILY DOSE 3.61 MBQ
     Route: 042
     Dates: start: 20131015, end: 20131015
  2. ALPHARADIN [Suspect]
     Indication: METASTASES TO BONE
     Dosage: DAILY DOSE 3.59 MBQ
     Route: 042
     Dates: start: 20131112, end: 20131112
  3. BISOPROLOL [Concomitant]
     Indication: HYPERTENSION
     Dosage: 5 MG, ONCE
     Route: 048
     Dates: start: 1993
  4. ISOSORBIDE MONONITRATE [Concomitant]
     Indication: HYPERTENSION
     Dosage: 60 MG, ONCE
     Route: 048
     Dates: start: 1973
  5. DABIGATRAN [Concomitant]
     Indication: ATRIAL FIBRILLATION
     Dosage: DAILY DOSE 110 MG
     Route: 048
     Dates: start: 2011, end: 201311
  6. DABIGATRAN [Concomitant]
     Indication: ATRIAL FIBRILLATION
     Dosage: 110 MG, BID
     Route: 048
     Dates: start: 201311
  7. PRAVASTATIN [Concomitant]
     Indication: HYPERCHOLESTEROLAEMIA
     Dosage: DAILY DOSE 20 MG
     Route: 048
     Dates: start: 2005
  8. COZAAR [Concomitant]
     Indication: HYPERTENSION
     Dosage: DAILY DOSE 100 MG
     Route: 048
     Dates: start: 1983, end: 201311
  9. COZAAR [Concomitant]
     Indication: HYPERTENSION
     Dosage: 25 MG, ONCE
     Route: 048
     Dates: start: 201311
  10. FUROSEMIDE [Concomitant]
     Indication: HYPERTENSION
     Dosage: DAILY DOSE 40 MG
     Route: 048
     Dates: start: 2003, end: 201311
  11. DECAPEPTYL [TRIPTORELIN ACETATE] [Concomitant]
     Indication: PROSTATE CANCER
     Dosage: DAILY DOSE 11.25 MG
     Route: 030
     Dates: start: 20100504
  12. DENOSUMAB [Concomitant]
     Indication: PROSTATE CANCER
     Dosage: DAILY DOSE 120 MG
     Route: 058
     Dates: start: 201306
  13. CALCICHEW-D3 FORTE [Concomitant]
     Indication: PROPHYLAXIS
     Dosage: TOTAL DAILY DOSE: 2 TABS
     Route: 048
     Dates: start: 201306

REACTIONS (3)
  - Renal failure acute [Recovered/Resolved]
  - Dehydration [Recovered/Resolved]
  - Hypotension [Recovered/Resolved]
